FAERS Safety Report 20768233 (Version 2)
Quarter: 2022Q2

REPORT INFORMATION
  Report Type: Spontaneous
  Country: US (occurrence: US)
  Receive Date: 20220429
  Receipt Date: 20220517
  Transmission Date: 20220721
  Serious: Yes (Other)
  Sender: FDA-Public Use
  Company Number: US-TAKEDA-2022TUS028274

PATIENT
  Sex: Male
  Weight: 18.9 kg

DRUGS (6)
  1. VYVANSE [Suspect]
     Active Substance: LISDEXAMFETAMINE DIMESYLATE
     Indication: Abnormal behaviour
     Dosage: UNK
     Route: 065
     Dates: start: 202003
  2. VYVANSE [Suspect]
     Active Substance: LISDEXAMFETAMINE DIMESYLATE
     Dosage: 1 DOSAGE FORM, QD
     Route: 048
  3. ACETAMINOPHEN [Concomitant]
     Active Substance: ACETAMINOPHEN
     Indication: Product used for unknown indication
     Dosage: 160 MILLIGRAM, QD
     Route: 048
  4. SILDENAFIL CITRATE [Concomitant]
     Active Substance: SILDENAFIL CITRATE
  5. SNAPCEF [Concomitant]
  6. RANIBIZUMAB [Concomitant]
     Active Substance: RANIBIZUMAB

REACTIONS (9)
  - Provisional tic disorder [Unknown]
  - Visual impairment [Unknown]
  - Pain [Unknown]
  - Mental disorder [Unknown]
  - Feeding disorder [Unknown]
  - Stress [Unknown]
  - Injury [Unknown]
  - Crying [Unknown]
  - Adverse drug reaction [Unknown]
